FAERS Safety Report 20356053 (Version 1)
Quarter: 2022Q1

REPORT INFORMATION
  Report Type: Spontaneous
  Country: US (occurrence: None)
  Receive Date: 20220119
  Receipt Date: 20220119
  Transmission Date: 20220423
  Serious: Yes (Other)
  Sender: FDA-Public Use
  Company Number: None

PATIENT
  Age: 38 Year
  Sex: Female

DRUGS (1)
  1. AVOBENZONE\HOMOSALATE\OCTINOXATE\OCTISALATE [Suspect]
     Active Substance: AVOBENZONE\HOMOSALATE\OCTINOXATE\OCTISALATE
     Indication: Prophylaxis against solar radiation
     Dosage: OTHER QUANTITY : 1 DROP(S);?OTHER ROUTE : FACE;?
     Route: 050

REACTIONS (3)
  - Drug hypersensitivity [None]
  - Eye irritation [None]
  - Suspected counterfeit product [None]

NARRATIVE: CASE EVENT DATE: 20220110
